FAERS Safety Report 25031294 (Version 1)
Quarter: 2025Q1

REPORT INFORMATION
  Report Type: Spontaneous
  Country: US (occurrence: None)
  Receive Date: 20250228
  Receipt Date: 20250228
  Transmission Date: 20250408
  Serious: Yes (unspecified)
  Sender: FDA-CTU
  Company Number: None

PATIENT
  Age: 50 Year
  Sex: Female
  Weight: 79 kg

DRUGS (2)
  1. LINEZOLID [Suspect]
     Active Substance: LINEZOLID
     Indication: Chronic obstructive pulmonary disease
     Dosage: FREQUENCY : TWICE A DAY;?
     Route: 042
     Dates: start: 20250219, end: 20250221
  2. LINEZOLID [Suspect]
     Active Substance: LINEZOLID
     Indication: Pneumonia

REACTIONS (2)
  - Aspartate aminotransferase increased [None]
  - Alanine aminotransferase increased [None]

NARRATIVE: CASE EVENT DATE: 20250221
